FAERS Safety Report 6463754-9 (Version None)
Quarter: 2009Q4

REPORT INFORMATION
  Report Type: 
  Country: None (occurrence: None)
  Receive Date: 20091201
  Receipt Date: 20091118
  Transmission Date: 20100525
  Serious: Yes (Other)
  Sender: FDA-Public Use
  Company Number: US-JNJFOC-20091106776

PATIENT
  Sex: Female

DRUGS (3)
  1. ORTHO-NOVUM 7/7/7-21 [Suspect]
     Indication: DRUG USE FOR UNKNOWN INDICATION
     Dosage: EE 35 UG/NET 0.5 MG X7DAYS,EE 35UG/ NET 0.75 MGX7 DAYS,EE 35UG/NET1.0MGX7 DAYS AND EE 0 UG/NET 0MG
     Route: 048
  2. ETORICOXIB [Interacting]
     Indication: DRUG USE FOR UNKNOWN INDICATION
     Dosage: EACH EVENING
     Route: 065
  3. PLACEBO [Suspect]
     Indication: DRUG USE FOR UNKNOWN INDICATION
     Route: 065

REACTIONS (3)
  - DRUG EXPOSURE DURING PREGNANCY [None]
  - DRUG INTERACTION [None]
  - PREGNANCY ON ORAL CONTRACEPTIVE [None]
